FAERS Safety Report 9242983 (Version 1)
Quarter: 2013Q2

REPORT INFORMATION
  Report Type: Spontaneous
  Country: US (occurrence: US)
  Receive Date: 20130419
  Receipt Date: 20130419
  Transmission Date: 20140414
  Serious: No
  Sender: FDA-Public Use
  Company Number: US-ASTRAZENECA-2013SE22193

PATIENT
  Age: 78 Year
  Sex: Male
  Weight: 86.2 kg

DRUGS (4)
  1. CRESTOR [Suspect]
     Indication: BLOOD CHOLESTEROL INCREASED
     Route: 048
     Dates: start: 2009
  2. VITAMIN D [Concomitant]
     Indication: SUPPLEMENTATION THERAPY
     Dosage: DAILY
     Route: 048
  3. OMEGA C [Concomitant]
     Indication: SUPPLEMENTATION THERAPY
     Dosage: BID
     Route: 048
  4. CALCIUM [Concomitant]
     Route: 048

REACTIONS (5)
  - Sensory loss [Unknown]
  - Muscular weakness [Unknown]
  - Fatigue [Unknown]
  - Amnesia [Unknown]
  - Memory impairment [Unknown]
